FAERS Safety Report 5664185-1 (Version None)
Quarter: 2008Q1

REPORT INFORMATION
  Report Type: 
  Country: None (occurrence: None)
  Receive Date: 20080312
  Receipt Date: 20080227
  Transmission Date: 20080703
  Serious: Yes (Hospitalization)
  Sender: FDA-Public Use
  Company Number: 2008S1000049

PATIENT
  Age: 58 Year
  Sex: Female
  Weight: 151 kg

DRUGS (21)
  1. CUBICIN [Suspect]
     Indication: CELLULITIS
     Dosage: 3.3 MG/KG;QD;IV
     Route: 042
     Dates: start: 20071201, end: 20080120
  2. CUBICIN [Suspect]
     Indication: PSEUDOMONAS INFECTION
     Dosage: 3.3 MG/KG;QD;IV
     Route: 042
     Dates: start: 20071201, end: 20080120
  3. CUBICIN [Suspect]
     Indication: SKIN LACERATION
     Dosage: 3.3 MG/KG;QD;IV
     Route: 042
     Dates: start: 20071201, end: 20080120
  4. CUBICIN [Suspect]
     Indication: STAPHYLOCOCCAL INFECTION
     Dosage: 3.3 MG/KG;QD;IV
     Route: 042
     Dates: start: 20071201, end: 20080120
  5. FERROUS GLUCONATE [Concomitant]
  6. ZOSYN [Concomitant]
  7. LACTULOSE [Concomitant]
  8. FOLIC ACID [Concomitant]
  9. ASCORBIC ACID [Concomitant]
  10. ZINC [Concomitant]
  11. DURAGESIC-100 [Concomitant]
  12. CIPROFLOXACIN [Concomitant]
  13. MEGACE [Concomitant]
  14. FLUCONAZOLE [Concomitant]
  15. WELLBUTRIN [Concomitant]
  16. DILTIAZEM SODIUM [Concomitant]
  17. FUROSEMIDE [Concomitant]
  18. LYRICA [Concomitant]
  19. COREG [Concomitant]
  20. LORTAB [Concomitant]
  21. PEPCID [Concomitant]

REACTIONS (10)
  - ACUTE RESPIRATORY FAILURE [None]
  - ALANINE AMINOTRANSFERASE INCREASED [None]
  - AMMONIA INCREASED [None]
  - ASPARTATE AMINOTRANSFERASE INCREASED [None]
  - BLOOD BICARBONATE INCREASED [None]
  - BLOOD CHLORIDE DECREASED [None]
  - BLOOD SODIUM DECREASED [None]
  - RENAL FAILURE ACUTE [None]
  - RESPIRATORY ACIDOSIS [None]
  - RHABDOMYOLYSIS [None]
